FAERS Safety Report 10440254 (Version 1)
Quarter: 2014Q3

REPORT INFORMATION
  Report Type: Spontaneous
  Country: US (occurrence: US)
  Receive Date: 20140908
  Receipt Date: 20140908
  Transmission Date: 20150326
  Serious: No
  Sender: FDA-Public Use
  Company Number: US-BRISTOL-MYERS SQUIBB COMPANY-20699005

PATIENT
  Age: 23 Year
  Sex: Female

DRUGS (6)
  1. GABAPENTIN. [Concomitant]
     Active Substance: GABAPENTIN
  2. CITALOPRAM [Concomitant]
     Active Substance: CITALOPRAM HYDROBROMIDE
  3. ABILIFY [Suspect]
     Active Substance: ARIPIPRAZOLE
     Dates: end: 20140207
  4. TEMAZEPAM. [Concomitant]
     Active Substance: TEMAZEPAM
  5. LITHIUM [Concomitant]
     Active Substance: LITHIUM CARBONATE
  6. ATIVAN [Concomitant]
     Active Substance: LORAZEPAM

REACTIONS (1)
  - Adverse drug reaction [Unknown]
